FAERS Safety Report 10022968 (Version 1)
Quarter: 2014Q1

REPORT INFORMATION
  Report Type: Spontaneous
  Country: US (occurrence: US)
  Receive Date: 20140319
  Receipt Date: 20140319
  Transmission Date: 20141002
  Serious: Yes (Other)
  Sender: FDA-Public Use
  Company Number: US-PFIZER INC-2014076507

PATIENT
  Sex: Male

DRUGS (2)
  1. EFFEXOR XR [Suspect]
     Dosage: 75 MG, UNK
  2. CADUET [Suspect]
     Dosage: 10 MG/10 MG

REACTIONS (2)
  - Cardiac disorder [Unknown]
  - Drug prescribing error [Unknown]
